FAERS Safety Report 7342502-4 (Version None)
Quarter: 2011Q1

REPORT INFORMATION
  Report Type: 
  Country: None (occurrence: None)
  Receive Date: 20110310
  Receipt Date: 20110304
  Transmission Date: 20110831
  Serious: No
  Sender: FDA-Public Use
  Company Number: US-PFIZER INC-2011016925

PATIENT
  Sex: Female
  Weight: 52.154 kg

DRUGS (8)
  1. LEXAPRO [Concomitant]
     Dosage: 20 MG, UNK
  2. DIFLUCAN [Suspect]
     Indication: CANDIDIASIS
     Dosage: 100 MG, 2X/DAY
     Route: 048
     Dates: start: 20110208
  3. METRONIDAZOLE [Concomitant]
     Indication: CLOSTRIDIAL INFECTION
     Dosage: UNK
  4. DIFLUCAN [Suspect]
     Indication: SYSTEMIC CANDIDA
     Dosage: 100 MG, 2X/DAY
     Route: 048
     Dates: start: 20110106
  5. RITALIN [Concomitant]
     Dosage: UNK
  6. VISTARIL [Concomitant]
     Dosage: UNK
  7. AMBIEN [Concomitant]
     Dosage: UNK
  8. TRAZODONE [Concomitant]
     Dosage: UNK

REACTIONS (3)
  - ZINC DEFICIENCY [None]
  - DRUG INEFFECTIVE [None]
  - SERUM SEROTONIN DECREASED [None]
